FAERS Safety Report 25273119 (Version 1)
Quarter: 2025Q2

REPORT INFORMATION
  Report Type: Spontaneous
  Country: US (occurrence: None)
  Receive Date: 20250505
  Receipt Date: 20250505
  Transmission Date: 20250716
  Serious: Yes (Hospitalization)
  Sender: FDA-CTU
  Company Number: None

PATIENT
  Age: 86 Year
  Sex: Male

DRUGS (1)
  1. NUPLAZID [Suspect]
     Active Substance: PIMAVANSERIN TARTRATE

REACTIONS (5)
  - Muscle spasticity [None]
  - Dry mouth [None]
  - Aphonia [None]
  - Blood pressure increased [None]
  - Intentional dose omission [None]

NARRATIVE: CASE EVENT DATE: 20250418
